FAERS Safety Report 13960335 (Version 1)
Quarter: 2017Q3

REPORT INFORMATION
  Report Type: Spontaneous
  Country: ID (occurrence: ID)
  Receive Date: 20170912
  Receipt Date: 20170912
  Transmission Date: 20171128
  Serious: Yes (Other)
  Sender: FDA-Public Use
  Company Number: ID-TOLMAR, INC.-2017ID011838

PATIENT
  Age: 65 Year
  Sex: Male

DRUGS (1)
  1. ELIGARD [Suspect]
     Active Substance: LEUPROLIDE ACETATE
     Indication: PROSTATE CANCER
     Dosage: 22.5 MG, ONCE DAILY/ Q3MONTHS
     Route: 058
     Dates: end: 20170831

REACTIONS (3)
  - Prostatic specific antigen increased [Unknown]
  - Bone pain [Unknown]
  - Metastases to bone [Unknown]
